FAERS Safety Report 10733169 (Version 1)
Quarter: 2015Q1

REPORT INFORMATION
  Report Type: Spontaneous
  Country: NL (occurrence: NL)
  Receive Date: 20150123
  Receipt Date: 20150123
  Transmission Date: 20150721
  Serious: Yes (Other)
  Sender: FDA-Public Use
  Company Number: PHHY2015NL007717

PATIENT
  Age: 37 Year
  Sex: Female
  Weight: 72 kg

DRUGS (2)
  1. PROGESTERONE. [Suspect]
     Active Substance: PROGESTERONE
     Indication: INFERTILITY FEMALE
     Dosage: 1 DF, QD
     Route: 067
     Dates: start: 201306
  2. PREDNISON [Suspect]
     Active Substance: PREDNISONE
     Indication: INFERTILITY FEMALE
     Dosage: 40 MG, QD
     Route: 048
     Dates: start: 201306

REACTIONS (1)
  - Foetal death [Not Recovered/Not Resolved]

NARRATIVE: CASE EVENT DATE: 20140424
